FAERS Safety Report 19415228 (Version 2)
Quarter: 2021Q2

REPORT INFORMATION
  Report Type: Spontaneous
  Country: US (occurrence: US)
  Receive Date: 20210615
  Receipt Date: 20210622
  Transmission Date: 20210717
  Serious: No
  Sender: FDA-Public Use
  Company Number: US-TEVA-2021-US-1921538

PATIENT
  Age: 58 Year
  Sex: Male

DRUGS (1)
  1. BACLOFEN. [Suspect]
     Active Substance: BACLOFEN
     Dosage: WEANED HIM OFF STARTING FROM 3 TO 2 PILLS FOR 5 DAYS, THEN 2 PILLS TO 1 PILL FOR 5 DAYS, THE THIRD D
     Route: 065
     Dates: end: 20210525

REACTIONS (9)
  - Anxiety [Not Recovered/Not Resolved]
  - Disturbance in attention [Unknown]
  - Off label use [Unknown]
  - Thinking abnormal [Unknown]
  - Feeling abnormal [Not Recovered/Not Resolved]
  - Insomnia [Not Recovered/Not Resolved]
  - Headache [Unknown]
  - Photosensitivity reaction [Not Recovered/Not Resolved]
  - Vision blurred [Not Recovered/Not Resolved]
